FAERS Safety Report 19611055 (Version 1)
Quarter: 2021Q3

REPORT INFORMATION
  Report Type: Spontaneous
  Country: US (occurrence: US)
  Receive Date: 20210726
  Receipt Date: 20210726
  Transmission Date: 20211014
  Serious: No
  Sender: FDA-Public Use
  Company Number: US-LANNETT COMPANY, INC.-US-2021LAN000167

PATIENT
  Sex: Female
  Weight: 66.58 kg

DRUGS (2)
  1. METHOCARBAMOL. [Suspect]
     Active Substance: METHOCARBAMOL
     Indication: MUSCLE SPASTICITY
     Dosage: 500 MG, TID
     Route: 048
     Dates: start: 20201230
  2. AMANTADINE HYDROCHLORIDE. [Suspect]
     Active Substance: AMANTADINE HYDROCHLORIDE
     Indication: FATIGUE
     Dosage: 100 MG, BID
     Route: 048
     Dates: start: 20201020, end: 20210330

REACTIONS (2)
  - Somnolence [Unknown]
  - Drug ineffective [Unknown]
